FAERS Safety Report 9285948 (Version 1)
Quarter: 2013Q2

REPORT INFORMATION
  Report Type: Spontaneous
  Country: CA (occurrence: CA)
  Receive Date: 20130513
  Receipt Date: 20130513
  Transmission Date: 20140414
  Serious: Yes (Hospitalization, Other)
  Sender: FDA-Public Use
  Company Number: CA-TEVA-404522USA

PATIENT
  Age: 5 Year
  Sex: Female
  Weight: 20.88 kg

DRUGS (1)
  1. CARBAMAZEPINE [Suspect]
     Dosage: 300 MILLIGRAM DAILY;
     Route: 048

REACTIONS (9)
  - Dysuria [Unknown]
  - Oral pain [Unknown]
  - Pruritus [Unknown]
  - Pyrexia [Unknown]
  - Respiratory depression [Unknown]
  - Skin exfoliation [Unknown]
  - Skin lesion [Unknown]
  - Stevens-Johnson syndrome [Unknown]
  - Tachycardia [Unknown]
